FAERS Safety Report 24709603 (Version 2)
Quarter: 2024Q4

REPORT INFORMATION
  Report Type: Report from Study
  Country: TW (occurrence: TW)
  Receive Date: 20241209
  Receipt Date: 20241212
  Transmission Date: 20250115
  Serious: Yes (Death, Hospitalization, Other)
  Sender: ALEXION PHARMACEUTICALS
  Company Number: TW-AstraZeneca-CH-00762005A

PATIENT
  Age: 73 Year
  Weight: 40 kg

DRUGS (4)
  1. DURVALUMAB [Suspect]
     Active Substance: DURVALUMAB
     Indication: Cholangiocarcinoma
     Dosage: 1500 MILLIGRAM
  2. DURVALUMAB [Suspect]
     Active Substance: DURVALUMAB
     Dosage: 1500 MILLIGRAM
     Route: 041
  3. DURVALUMAB [Suspect]
     Active Substance: DURVALUMAB
     Dosage: 1500 MILLIGRAM
  4. DURVALUMAB [Suspect]
     Active Substance: DURVALUMAB
     Dosage: 1500 MILLIGRAM
     Route: 041

REACTIONS (4)
  - Duodenal perforation [Fatal]
  - Neoplasm [Fatal]
  - Sepsis [Fatal]
  - Drug ineffective [Fatal]
